FAERS Safety Report 8817400 (Version 2)
Quarter: 2012Q4

REPORT INFORMATION
  Report Type: Report from Study
  Country: DE (occurrence: DE)
  Receive Date: 20121004
  Receipt Date: 20121029
  Transmission Date: 20130627
  Serious: No
  Sender: FDA-Public Use
  Company Number: DE-PFIZER INC-2012241185

PATIENT
  Age: 64 Year
  Sex: Male

DRUGS (6)
  1. SUNITINIB MALATE [Suspect]
     Indication: RENAL CELL CARCINOMA
     Dosage: according to protocol
     Dates: start: 20110429, end: 20120921
  2. ASS [Concomitant]
     Dosage: 100 mg, once daily  (in the morning)
     Dates: start: 20110326
  3. BISOPROLOL [Concomitant]
     Dosage: 2.5 mg, once daily (in the morning)
     Dates: start: 2005
  4. MIRTAZAPINE [Concomitant]
     Dosage: 30 mg, once daily (in the evening)
     Dates: start: 20120328
  5. TAVOR [Concomitant]
     Dosage: 1 mg, once daily (at night)
     Dates: start: 20120617
  6. ALLOPURINOL [Concomitant]
     Dosage: 100 mg, once daily  (in the morning)
     Dates: start: 20120525

REACTIONS (2)
  - Disease progression [Recovered/Resolved]
  - Renal cell carcinoma [Recovered/Resolved]
